FAERS Safety Report 5235313-7 (Version None)
Quarter: 2007Q1

REPORT INFORMATION
  Report Type: 
  Country: None (occurrence: None)
  Receive Date: 20070208
  Receipt Date: 20070208
  Transmission Date: 20070707
  Serious: Yes (Hospitalization)
  Sender: FDA-Public Use
  Company Number: None

PATIENT
  Age: 62 Year
  Sex: Male

DRUGS (17)
  1. WARFARIN SODIUM [Suspect]
     Indication: AORTIC VALVE REPLACEMENT
     Dates: start: 20050106, end: 20070207
  2. ENOXAPARIN SODIUM [Suspect]
     Indication: AORTIC VALVE REPLACEMENT
     Dates: start: 20061213, end: 20061220
  3. TOPROL-XL [Concomitant]
  4. ALDACTONE [Concomitant]
  5. ZETIA [Concomitant]
  6. VALSARTAN [Concomitant]
  7. CRESTOR [Concomitant]
  8. ZANTAC [Concomitant]
  9. ISDN [Concomitant]
  10. GEMFIBROZIL [Concomitant]
  11. LASIX [Concomitant]
  12. FELODIPINE [Concomitant]
  13. DIGOXIN [Concomitant]
  14. PLAVIX [Concomitant]
  15. COUMADIN [Concomitant]
  16. INSULIN [Concomitant]
  17. LOVENOX [Concomitant]

REACTIONS (2)
  - HAEMOPTYSIS [None]
  - INTERNATIONAL NORMALISED RATIO INCREASED [None]
